FAERS Safety Report 21970008 (Version 1)
Quarter: 2023Q1

REPORT INFORMATION
  Report Type: Spontaneous
  Country: BR (occurrence: BR)
  Receive Date: 20230209
  Receipt Date: 20230209
  Transmission Date: 20230418
  Serious: Yes (Other)
  Sender: FDA-Public Use
  Company Number: BR-AMGEN-BRASP2023017129

PATIENT
  Age: 63 Year
  Sex: Female
  Weight: 58 kg

DRUGS (3)
  1. LUMAKRAS [Suspect]
     Active Substance: SOTORASIB
     Indication: Lung neoplasm malignant
     Dosage: 8 PILLS, QD
     Route: 065
     Dates: start: 20221201
  2. LUMAKRAS [Suspect]
     Active Substance: SOTORASIB
     Dosage: CAME BACK WITH 4
     Route: 065
  3. LUMAKRAS [Suspect]
     Active Substance: SOTORASIB
     Dosage: CAME BACK WITH 2
     Route: 065

REACTIONS (7)
  - Somatic hallucination [Unknown]
  - Musculoskeletal chest pain [Unknown]
  - Pain [Not Recovered/Not Resolved]
  - Diarrhoea [Unknown]
  - Abdominal pain upper [Unknown]
  - Pyrexia [Unknown]
  - Adverse reaction [Unknown]
